FAERS Safety Report 9493165 (Version 1)
Quarter: 2013Q3

REPORT INFORMATION
  Report Type: Spontaneous
  Country: KR (occurrence: KR)
  Receive Date: 20130902
  Receipt Date: 20130902
  Transmission Date: 20140515
  Serious: Yes (Other)
  Sender: FDA-Public Use
  Company Number: KR-JNJFOC-20130811615

PATIENT
  Sex: Female

DRUGS (2)
  1. TYLENOL 500 [Suspect]
     Route: 048
  2. TYLENOL 500 [Suspect]
     Indication: DYSMENORRHOEA
     Route: 048

REACTIONS (1)
  - Tinnitus [Unknown]
